FAERS Safety Report 7642433-6 (Version None)
Quarter: 2011Q3

REPORT INFORMATION
  Report Type: 
  Country: None (occurrence: None)
  Receive Date: 20110728
  Receipt Date: 20110104
  Transmission Date: 20111222
  Serious: No
  Sender: FDA-Public Use
  Company Number: US-MYLANLABS-2011S1000432

PATIENT
  Sex: Female

DRUGS (2)
  1. LEVOTHYROXINE SODIUM [Suspect]
     Indication: THYROID DISORDER
     Route: 048
     Dates: start: 20101201
  2. METOPROLOL TARTRATE [Concomitant]
     Route: 048

REACTIONS (2)
  - HAIR TEXTURE ABNORMAL [None]
  - HAIR GROWTH ABNORMAL [None]
